FAERS Safety Report 4742833-8 (Version None)
Quarter: 2005Q3

REPORT INFORMATION
  Report Type: 
  Country: None (occurrence: None)
  Receive Date: 20050811
  Receipt Date: 20050803
  Transmission Date: 20060218
  Serious: Yes (Death, Life-Threatening)
  Sender: FDA-Public Use
  Company Number: FR-GLAXOSMITHKLINE-B0390194A

PATIENT
  Age: 58 Year
  Sex: Male
  Weight: 80 kg

DRUGS (6)
  1. AUGMENTIN '125' [Suspect]
     Dosage: 2G SINGLE DOSE
     Route: 042
     Dates: start: 20050616, end: 20050616
  2. BRONCHODILATOR [Concomitant]
     Route: 055
  3. CORTICOTHERAPY [Concomitant]
     Route: 065
  4. VENTILATION [Concomitant]
     Route: 065
  5. ATARAX [Concomitant]
     Indication: PREMEDICATION
     Route: 065
     Dates: start: 20050615, end: 20050616
  6. SPINAL ANAESTHESIA [Concomitant]
     Dates: start: 20050616, end: 20050616

REACTIONS (11)
  - ANAPHYLACTIC SHOCK [None]
  - BRADYCARDIA [None]
  - BRONCHOSPASM [None]
  - CARDIO-RESPIRATORY ARREST [None]
  - CYANOSIS [None]
  - HAEMODYNAMIC TEST ABNORMAL [None]
  - MULTI-ORGAN FAILURE [None]
  - OXYGEN SATURATION DECREASED [None]
  - TRYPTASE INCREASED [None]
  - URTICARIA GENERALISED [None]
  - VENTRICULAR TACHYCARDIA [None]
